FAERS Safety Report 24975687 (Version 1)
Quarter: 2025Q1

REPORT INFORMATION
  Report Type: Spontaneous
  Country: HU (occurrence: HU)
  Receive Date: 20250217
  Receipt Date: 20250217
  Transmission Date: 20250408
  Serious: Yes (Hospitalization, Other)
  Sender: NOVO NORDISK
  Company Number: HU-NOVOPROD-1227633

PATIENT
  Age: 32 Year
  Sex: Female
  Weight: 115 kg

DRUGS (2)
  1. SAXENDA [Suspect]
     Active Substance: LIRAGLUTIDE
     Dosage: 1.2 MG, QD
     Dates: end: 20240404
  2. SAXENDA [Suspect]
     Active Substance: LIRAGLUTIDE
     Indication: Obesity
     Dosage: 0.6 MG, QD
     Dates: start: 20240322

REACTIONS (6)
  - Pre-eclampsia [Recovered/Resolved]
  - Uterine hypertonus [Recovered/Resolved]
  - Oligohydramnios [Recovered/Resolved]
  - Premature delivery [Recovered/Resolved]
  - Hypertension [Unknown]
  - Maternal exposure during pregnancy [Recovered/Resolved]

NARRATIVE: CASE EVENT DATE: 20240322
